FAERS Safety Report 14890046 (Version 1)
Quarter: 2018Q2

REPORT INFORMATION
  Report Type: Spontaneous
  Country: US (occurrence: US)
  Receive Date: 20180426
  Receipt Date: 20180426
  Transmission Date: 20180711
  Serious: Yes (Hospitalization)
  Sender: FDA-Public Use
  Company Number: None

PATIENT
  Age: 74 Year
  Sex: Female
  Weight: 89.9 kg

DRUGS (4)
  1. LENALIDOMIDE (CC-5013) [Suspect]
     Active Substance: LENALIDOMIDE
     Dates: end: 20180409
  2. BUMEX [Concomitant]
     Active Substance: BUMETANIDE
  3. VELCADE [Suspect]
     Active Substance: BORTEZOMIB
     Dates: end: 20180406
  4. DEXAMETHASONE. [Suspect]
     Active Substance: DEXAMETHASONE
     Dates: end: 20180407

REACTIONS (5)
  - Blood pressure decreased [None]
  - Presyncope [None]
  - Blood creatinine increased [None]
  - Dizziness [None]
  - Acute kidney injury [None]

NARRATIVE: CASE EVENT DATE: 20180419
